FAERS Safety Report 24844284 (Version 2)
Quarter: 2025Q1

REPORT INFORMATION
  Report Type: Report from Study
  Country: CA (occurrence: CA)
  Receive Date: 20250115
  Receipt Date: 20250131
  Transmission Date: 20250409
  Serious: Yes (Death, Other)
  Sender: IPSEN BIOPHARMACEUTICALS, INC.
  Company Number: CA-IPSEN Group, Research and Development-2025-00986

PATIENT
  Age: 51 Year
  Sex: Male
  Weight: 89.7 kg

DRUGS (7)
  1. LANREOTIDE ACETATE [Suspect]
     Active Substance: LANREOTIDE ACETATE
     Indication: Gastroenteropancreatic neuroendocrine tumour disease
     Dosage: DEEP SUBCUTANEOUS
     Route: 058
     Dates: start: 20240709, end: 20241210
  2. LANREOTIDE ACETATE [Suspect]
     Active Substance: LANREOTIDE ACETATE
     Indication: Pancreatic neuroendocrine tumour metastatic
  3. ONDANSETRON [Concomitant]
     Active Substance: ONDANSETRON
  4. CODEINE [Concomitant]
     Active Substance: CODEINE
  5. LORAZEPAM [Concomitant]
     Active Substance: LORAZEPAM
  6. VITAMIN C [Concomitant]
     Active Substance: ASCORBIC ACID
  7. CHOLECALCIFEROL [Concomitant]
     Active Substance: CHOLECALCIFEROL

REACTIONS (2)
  - Upper gastrointestinal haemorrhage [Fatal]
  - Illness [Unknown]

NARRATIVE: CASE EVENT DATE: 20250107
